FAERS Safety Report 7248938-4 (Version None)
Quarter: 2011Q1

REPORT INFORMATION
  Report Type: 
  Country: None (occurrence: None)
  Receive Date: 20110128
  Receipt Date: 20110120
  Transmission Date: 20110831
  Serious: Yes (Life-Threatening, Hospitalization)
  Sender: FDA-Public Use
  Company Number: JP-BRISTOL-MYERS SQUIBB COMPANY-15472467

PATIENT
  Age: 56 Year
  Sex: Male
  Weight: 62 kg

DRUGS (8)
  1. PREDONINE [Suspect]
     Indication: RHEUMATOID ARTHRITIS
     Dosage: 1DF=5-10MG/DAY.TABLETS
     Route: 048
  2. POVIDONE IODINE [Concomitant]
     Dosage: SOLUTION
     Route: 061
     Dates: start: 20100526
  3. ABATACEPT [Suspect]
     Indication: RHEUMATOID ARTHRITIS
     Route: 041
     Dates: start: 20070627, end: 20101110
  4. RINDERON-VG [Concomitant]
     Indication: XERODERMA
     Dosage: OINTMENT
     Route: 061
     Dates: start: 20080917
  5. RHEUMATREX [Suspect]
     Indication: RHEUMATOID ARTHRITIS
     Dosage: CAPSULES
     Route: 048
     Dates: end: 20101216
  6. TAKEPRON [Concomitant]
     Indication: GASTRITIS
     Dosage: TABLETS
     Route: 048
     Dates: start: 20101208
  7. TAKEPRON [Concomitant]
     Indication: REFLUX OESOPHAGITIS
     Dosage: TABLETS
     Route: 048
     Dates: start: 20101208
  8. VOLTAREN [Concomitant]
     Indication: RHEUMATOID ARTHRITIS
     Dosage: VOLTAREN SR CAPSULES
     Route: 048

REACTIONS (2)
  - STAPHYLOCOCCAL SEPSIS [None]
  - PELVIC ABSCESS [None]
